FAERS Safety Report 9354328 (Version 1)
Quarter: 2013Q2

REPORT INFORMATION
  Report Type: Spontaneous
  Country: MX (occurrence: MX)
  Receive Date: 20130618
  Receipt Date: 20130618
  Transmission Date: 20140414
  Serious: Yes (Other)
  Sender: FDA-Public Use
  Company Number: MX-ELI_LILLY_AND_COMPANY-MX201306002238

PATIENT
  Sex: Female

DRUGS (1)
  1. FORTEO [Suspect]
     Indication: RIB FRACTURE

REACTIONS (3)
  - Neoplasm [Unknown]
  - Spinal disorder [Unknown]
  - Off label use [Unknown]
